FAERS Safety Report 5733715-3 (Version None)
Quarter: 2008Q2

REPORT INFORMATION
  Report Type: 
  Country: None (occurrence: None)
  Receive Date: 20080509
  Receipt Date: 20080430
  Transmission Date: 20081010
  Serious: Yes (Hospitalization)
  Sender: FDA-Public Use
  Company Number: FR-PFIZER INC-2006064204

PATIENT
  Sex: Male
  Weight: 65 kg

DRUGS (8)
  1. SU-011,248 [Suspect]
     Route: 048
     Dates: start: 20060306, end: 20060403
  2. FRAXIPARINE [Concomitant]
     Route: 058
  3. OMEPRAZOLE [Concomitant]
     Route: 048
     Dates: start: 20060123, end: 20060428
  4. ERCEFURYL [Concomitant]
     Route: 048
  5. LOPERAMIDE HCL [Concomitant]
     Route: 048
  6. SKENAN [Concomitant]
     Route: 048
  7. DAFALGAN CODEINE [Concomitant]
     Route: 048
  8. ZOPHREN [Concomitant]
     Route: 048

REACTIONS (3)
  - ANAEMIA [None]
  - HYPOKALAEMIA [None]
  - VISION BLURRED [None]
